FAERS Safety Report 5554615-8 (Version None)
Quarter: 2007Q4

REPORT INFORMATION
  Report Type: 
  Country: None (occurrence: None)
  Receive Date: 20071210
  Receipt Date: 20071210
  Transmission Date: 20080405
  Serious: No
  Sender: FDA-Public Use
  Company Number: None

PATIENT
  Age: 75 Year
  Sex: Male

DRUGS (1)
  1. EZETIMIBE [Suspect]
     Indication: HYPERLIPIDAEMIA
     Dosage: 5MG EVERY DAY PO
     Route: 048
     Dates: start: 20060907, end: 20070706

REACTIONS (1)
  - BLOOD CREATINE PHOSPHOKINASE INCREASED [None]
